FAERS Safety Report 4681607-3 (Version None)
Quarter: 2005Q2

REPORT INFORMATION
  Report Type: 
  Country: None (occurrence: None)
  Receive Date: 20050602
  Receipt Date: 20050521
  Transmission Date: 20051028
  Serious: Yes (Hospitalization, Other)
  Sender: FDA-Public Use
  Company Number: 2005049212

PATIENT
  Age: 58 Year
  Sex: Male

DRUGS (2)
  1. CELEBREX [Suspect]
     Indication: TENDONITIS
     Dosage: 200 MG (200 MG, 1 IN 1 D), ORAL
     Route: 048
     Dates: start: 20021101
  2. HYTRIN [Concomitant]

REACTIONS (2)
  - DYSPNOEA [None]
  - VENTRICULAR TACHYCARDIA [None]
